FAERS Safety Report 4647613-X (Version None)
Quarter: 2005Q2

REPORT INFORMATION
  Report Type: 
  Country: None (occurrence: None)
  Receive Date: 20050426
  Receipt Date: 20050420
  Transmission Date: 20051028
  Serious: Yes (Hospitalization, Disabling, Other)
  Sender: FDA-Public Use
  Company Number: GBWYE603420APR05

PATIENT
  Age: 14 Year
  Sex: Male

DRUGS (6)
  1. RAPAMUNE [Suspect]
     Indication: PROPHYLAXIS AGAINST TRANSPLANT REJECTION
     Dosage: 5MG ORAL
     Route: 048
     Dates: start: 20040218, end: 20041018
  2. AZATHIOPRINE [Concomitant]
  3. PREDNISONE [Concomitant]
  4. ALFACALCIDOL (ALFACALCIDOL) [Concomitant]
  5. NITROFURANTOIN [Concomitant]
  6. ENALAPRIL MALEATE [Concomitant]

REACTIONS (1)
  - PANNICULITIS [None]
